FAERS Safety Report 12975106 (Version 1)
Quarter: 2016Q4

REPORT INFORMATION
  Report Type: Spontaneous
  Country: JP (occurrence: JP)
  Receive Date: 20161125
  Receipt Date: 20161125
  Transmission Date: 20170207
  Serious: Yes (Other)
  Sender: FDA-Public Use
  Company Number: JP-SUN PHARMACEUTICAL INDUSTRIES LTD-2016R1-125207

PATIENT
  Age: 14 Year
  Sex: Female

DRUGS (5)
  1. GABAPENTINE [Concomitant]
     Active Substance: GABAPENTIN
     Indication: PAIN IN EXTREMITY
     Dosage: UNK
     Route: 065
  2. TRAMADOL. [Concomitant]
     Active Substance: TRAMADOL
     Indication: PAIN IN EXTREMITY
     Dosage: HIGH-DOSE
     Route: 065
  3. MORPHINE [Suspect]
     Active Substance: MORPHINE
     Indication: PAIN IN EXTREMITY
     Dosage: 50 MG, DAILY
     Route: 065
  4. MORPHINE [Suspect]
     Active Substance: MORPHINE
     Dosage: UNK
     Route: 041
  5. PENTAZOCINE [Suspect]
     Active Substance: PENTAZOCINE
     Indication: PAIN IN EXTREMITY
     Dosage: UNK
     Route: 065

REACTIONS (3)
  - Ileus paralytic [Recovering/Resolving]
  - Sedation [Recovering/Resolving]
  - Mental status changes [Recovering/Resolving]
